FAERS Safety Report 8463869-X (Version None)
Quarter: 2012Q2

REPORT INFORMATION
  Report Type: 
  Country: None (occurrence: None)
  Receive Date: 20120625
  Receipt Date: 20120613
  Transmission Date: 20120825
  Serious: Yes (Other)
  Sender: FDA-Public Use
  Company Number: HR-TEVA-344240ISR

PATIENT
  Age: 59 Year
  Sex: Female
  Weight: 51 kg

DRUGS (2)
  1. ATENOLOL [Suspect]
     Indication: TACHYCARDIA
     Dosage: 50 MILLIGRAM;
     Route: 048
     Dates: start: 20120508, end: 20120509
  2. MISAR [Concomitant]
     Indication: ADJUSTMENT DISORDER
     Dosage: 1 MILLIGRAM;
     Route: 048
     Dates: start: 20090101

REACTIONS (5)
  - FEELING ABNORMAL [None]
  - PRURITUS [None]
  - DYSPEPSIA [None]
  - DYSGEUSIA [None]
  - SWELLING FACE [None]
